FAERS Safety Report 6429767-8 (Version None)
Quarter: 2009Q4

REPORT INFORMATION
  Report Type: 
  Country: None (occurrence: None)
  Receive Date: 20091106
  Receipt Date: 20091026
  Transmission Date: 20100525
  Serious: Yes (Hospitalization)
  Sender: FDA-Public Use
  Company Number: BE-ELI_LILLY_AND_COMPANY-BE200910006666

PATIENT
  Sex: Male
  Weight: 71 kg

DRUGS (10)
  1. PEMETREXED [Suspect]
     Indication: NON-SMALL CELL LUNG CANCER
     Dosage: 500 MG/M2, ON D1 EVERY 21 DAYS
     Route: 042
     Dates: start: 20091007
  2. CISPLATIN [Suspect]
     Indication: NON-SMALL CELL LUNG CANCER
     Dosage: 75 MG/M2, ON D1 EVERY 21 DAYS
     Route: 042
     Dates: start: 20091007
  3. LISINOPRIL [Concomitant]
     Indication: PROPHYLAXIS
     Dates: start: 19940101
  4. INDAPAMIDE [Concomitant]
     Indication: PROPHYLAXIS
     Dates: start: 19940101
  5. ATENOLOL [Concomitant]
     Indication: PROPHYLAXIS
     Dates: start: 20070101
  6. GLIQUIDONE [Concomitant]
     Indication: PROPHYLAXIS
     Dates: start: 20070101
  7. AMLODIPINE [Concomitant]
     Indication: PROPHYLAXIS
     Dates: start: 19940101
  8. FOLIC ACID [Concomitant]
     Indication: PROPHYLAXIS
     Dates: start: 20090918
  9. VIT B12 [Concomitant]
     Indication: PROPHYLAXIS
     Dates: start: 20090918
  10. DEXAMETHASONE [Concomitant]
     Indication: PROPHYLAXIS
     Dates: start: 20090918

REACTIONS (1)
  - BACK PAIN [None]
